FAERS Safety Report 8660587 (Version 8)
Quarter: 2013Q3

REPORT INFORMATION
  Report Type: Spontaneous
  Country: US (occurrence: US)
  Receive Date: 20120711
  Receipt Date: 20130705
  Transmission Date: 20140515
  Serious: Yes (Hospitalization, Other)
  Sender: FDA-Public Use
  Company Number: US-009507513-1207USA000932

PATIENT
  Sex: Female
  Weight: 66.67 kg

DRUGS (6)
  1. FOSAMAX [Suspect]
     Indication: OSTEOPOROSIS
     Dosage: 70 MG, QW
     Route: 048
     Dates: start: 2000, end: 2008
  2. ALENDRONATE SODIUM [Suspect]
     Indication: OSTEOPOROSIS
     Dosage: 70 MG, QW
     Route: 048
  3. LIOTHYRONINE SODIUM [Concomitant]
     Indication: CROHN^S DISEASE
     Dosage: UNK
     Dates: start: 1965
  4. ASACOL [Concomitant]
     Indication: CROHN^S DISEASE
     Dosage: 400 MG, 1 TABLET BID - 2 TABLETS TID
     Route: 048
     Dates: start: 1965
  5. BUDESONIDE [Concomitant]
     Indication: CROHN^S DISEASE
     Dosage: UNK
     Dates: start: 1965
  6. ZOLOFT [Concomitant]
     Indication: DEPRESSION
     Dosage: 50 MG, QD
     Route: 048
     Dates: start: 1998

REACTIONS (38)
  - Femur fracture [Unknown]
  - Femur fracture [Unknown]
  - Open reduction of fracture [Unknown]
  - Foot operation [Unknown]
  - Knee arthroplasty [Unknown]
  - Rotator cuff repair [Unknown]
  - Shoulder operation [Unknown]
  - Humerus fracture [Unknown]
  - Knee arthroplasty [Unknown]
  - Varicose vein operation [Unknown]
  - Skin cancer [Unknown]
  - Cholecystectomy [Unknown]
  - Bone graft [Unknown]
  - Low turnover osteopathy [Unknown]
  - Calcium deficiency [Unknown]
  - Limb asymmetry [Unknown]
  - Peripheral vascular disorder [Unknown]
  - Hypertension [Unknown]
  - Atrial fibrillation [Not Recovered/Not Resolved]
  - Osteoarthritis [Unknown]
  - Cataract operation [Unknown]
  - Blood urine present [Unknown]
  - Colitis ulcerative [Unknown]
  - Radius fracture [Unknown]
  - Joint effusion [Unknown]
  - Dyspnoea [Unknown]
  - Tooth extraction [Unknown]
  - Body height decreased [Unknown]
  - Fatigue [Unknown]
  - Arthropathy [Unknown]
  - Mononeuritis [Not Recovered/Not Resolved]
  - Radius fracture [Unknown]
  - Anaemia [Unknown]
  - Neuropathy peripheral [Unknown]
  - Hysterectomy [Unknown]
  - Ear discomfort [Unknown]
  - Constipation [Recovered/Resolved]
  - Vertigo [Not Recovered/Not Resolved]
